FAERS Safety Report 9140757 (Version 1)
Quarter: 2013Q1

REPORT INFORMATION
  Report Type: Spontaneous
  Country: US (occurrence: US)
  Receive Date: 20130305
  Receipt Date: 20130305
  Transmission Date: 20140127
  Serious: Yes (Other)
  Sender: FDA-Public Use
  Company Number: US-ENDO PHARMACEUTICALS INC.-OPIR20100021

PATIENT
  Sex: Female

DRUGS (1)
  1. OPANA [Suspect]
     Indication: BRAIN INJURY
     Dates: end: 20100514

REACTIONS (3)
  - Incorrect dose administered [Unknown]
  - Dizziness [Unknown]
  - Confusional state [Unknown]
